FAERS Safety Report 5532197-4 (Version None)
Quarter: 2007Q4

REPORT INFORMATION
  Report Type: 
  Country: None (occurrence: None)
  Receive Date: 20071203
  Receipt Date: 20070205
  Transmission Date: 20080405
  Serious: No
  Sender: FDA-Public Use
  Company Number: US-BRISTOL-MYERS SQUIBB COMPANY-13669312

PATIENT
  Age: 43 Year
  Sex: Male
  Weight: 75 kg

DRUGS (3)
  1. VIDEX [Suspect]
  2. CRIXIVAN [Concomitant]
     Route: 048
  3. EPIVER [Concomitant]

REACTIONS (1)
  - EYELID PTOSIS [None]
